FAERS Safety Report 6912426-2 (Version None)
Quarter: 2010Q3

REPORT INFORMATION
  Report Type: 
  Country: None (occurrence: None)
  Receive Date: 20100806
  Receipt Date: 20100726
  Transmission Date: 20110219
  Serious: Yes (Other)
  Sender: FDA-Public Use
  Company Number: US-GILEAD-2010-0029412

PATIENT
  Age: 43 Year
  Sex: Male

DRUGS (2)
  1. TRUVADA [Suspect]
     Indication: HIV INFECTION
  2. REYATAZ [Concomitant]
     Indication: HIV INFECTION

REACTIONS (5)
  - BONE DENSITY DECREASED [None]
  - FANCONI SYNDROME ACQUIRED [None]
  - MUSCULAR WEAKNESS [None]
  - OSTEOMALACIA [None]
  - PATHOLOGICAL FRACTURE [None]
